FAERS Safety Report 15711641 (Version 1)
Quarter: 2018Q4

REPORT INFORMATION
  Report Type: Report from Study
  Country: None (occurrence: BR)
  Receive Date: 20181212
  Receipt Date: 20181212
  Transmission Date: 20190205
  Serious: Yes (Other)
  Sender: FDA-Public Use
  Company Number: BR-ABBVIE-18K-020-2584211-00

PATIENT
  Sex: Female
  Weight: 107 kg

DRUGS (4)
  1. HUMIRA [Suspect]
     Active Substance: ADALIMUMAB
     Indication: PSORIATIC ARTHROPATHY
     Route: 058
     Dates: start: 20170312
  2. GLIFAGE [Concomitant]
     Active Substance: METFORMIN HYDROCHLORIDE
     Indication: FAT TISSUE INCREASED
  3. EUTHYROX [Concomitant]
     Active Substance: LEVOTHYROXINE SODIUM
     Indication: HYPOTHYROIDISM
  4. NAPRIX D [Concomitant]
     Indication: HYPERTENSION
     Dosage: RAMIPRIL 5MG HYDROCHLOROTHIAZIDE 12,5MG

REACTIONS (3)
  - Blister [Unknown]
  - Apnoea [Unknown]
  - Cholelithiasis [Recovered/Resolved]
